FAERS Safety Report 10011951 (Version 2)
Quarter: 2014Q2

REPORT INFORMATION
  Report Type: Report from Study
  Country: US (occurrence: US)
  Receive Date: 20140314
  Receipt Date: 20140404
  Transmission Date: 20141212
  Serious: Yes (Hospitalization)
  Sender: FDA-Public Use
  Company Number: US-PFIZER INC-2014065336

PATIENT
  Age: 72 Year
  Sex: Female
  Weight: 50.3 kg

DRUGS (10)
  1. CRIZOTINIB [Suspect]
     Indication: GASTRIC NEOPLASM
     Dosage: 250 MG, TWICE DAILY CONTINUOUS
     Route: 048
     Dates: start: 20131119, end: 20131126
  2. CITRICAL [Concomitant]
     Indication: NUTRITIONAL SUPPLEMENTATION
     Dosage: 1 TAB, QD
     Route: 048
  3. ATIVAN [Concomitant]
     Indication: INSOMNIA
     Dosage: 1 MG, QD
     Route: 048
  4. REGLAN [Concomitant]
     Dosage: 10 MG, QD
     Route: 048
  5. IRON [Concomitant]
     Indication: ANAEMIA
     Dosage: IRON SOLUTION, 100MG/5ML, PRN
     Route: 042
  6. MIRALAX [Concomitant]
     Indication: CONSTIPATION
     Dosage: 17 G, PRN
     Route: 048
  7. SENNA - DOCUSATE [Concomitant]
     Indication: CONSTIPATION
     Dosage: 2 TAB, QD
     Route: 048
  8. DILAUDID [Concomitant]
     Indication: TUMOUR PAIN
     Dosage: 2 MG, PRN
     Route: 048
  9. OXYCONTIN [Concomitant]
     Indication: TUMOUR PAIN
     Dosage: 20 MG, PRN
     Route: 048
  10. HEXAVITAMIN [Concomitant]
     Indication: NUTRITIONAL SUPPLEMENTATION
     Dosage: 1 TAB QD
     Route: 048

REACTIONS (1)
  - Oedema peripheral [Recovered/Resolved]
